FAERS Safety Report 11123364 (Version 1)
Quarter: 2015Q2

REPORT INFORMATION
  Report Type: Spontaneous
  Country: US (occurrence: US)
  Receive Date: 20150519
  Receipt Date: 20150519
  Transmission Date: 20150821
  Serious: No
  Sender: FDA-Public Use
  Company Number: US-AUXILIUM PHARMACEUTICALS INC.-201502157

PATIENT
  Sex: Male
  Weight: 84.9 kg

DRUGS (11)
  1. ASPIRIN. [Concomitant]
     Active Substance: ASPIRIN
  2. XIAFLEX [Suspect]
     Active Substance: COLLAGENASE CLOSTRIDIUM HISTOLYTICUM
     Indication: PEYRONIE^S DISEASE
     Route: 026
  3. TRAMADOL [Concomitant]
     Active Substance: TRAMADOL
  4. MELATONIN [Concomitant]
     Active Substance: MELATONIN
  5. LUNESTA [Concomitant]
     Active Substance: ESZOPICLONE
  6. NAPROXEN. [Concomitant]
     Active Substance: NAPROXEN
  7. QUETIAPINE [Concomitant]
     Active Substance: QUETIAPINE
  8. VITAMIN C/E [Concomitant]
  9. DIPHENHYDRAMINE [Concomitant]
     Active Substance: DIPHENHYDRAMINE
  10. HYDROCODONE/APAP [Concomitant]
     Active Substance: ACETAMINOPHEN\HYDROCODONE
     Dosage: 5/325
  11. PAROXETINE [Concomitant]
     Active Substance: PAROXETINE\PAROXETINE HYDROCHLORIDE

REACTIONS (1)
  - Swelling [Unknown]
